FAERS Safety Report 13113251 (Version 1)
Quarter: 2017Q1

REPORT INFORMATION
  Report Type: Spontaneous
  Country: US (occurrence: US)
  Receive Date: 20170113
  Receipt Date: 20170113
  Transmission Date: 20170428
  Serious: No
  Sender: FDA-Public Use
  Company Number: US-GLAXOSMITHKLINE-US2017GSK004031

PATIENT
  Sex: Male

DRUGS (3)
  1. FLONASE [Suspect]
     Active Substance: FLUTICASONE PROPIONATE
     Indication: RHINORRHOEA
  2. FLONASE [Suspect]
     Active Substance: FLUTICASONE PROPIONATE
     Indication: EYE DISCHARGE
  3. FLONASE [Suspect]
     Active Substance: FLUTICASONE PROPIONATE
     Indication: COUGH

REACTIONS (6)
  - Medication error [Unknown]
  - Nasal discomfort [Unknown]
  - Epistaxis [Unknown]
  - Product use issue [Unknown]
  - Hyperaesthesia [Unknown]
  - Sneezing [Unknown]
